APPROVED DRUG PRODUCT: BACITRACIN-NEOMYCIN-POLYMYXIN
Active Ingredient: BACITRACIN ZINC; NEOMYCIN SULFATE; POLYMYXIN B SULFATE
Strength: 400 UNITS/GM;EQ 3.5MG BASE/GM;5,000 UNITS/GM
Dosage Form/Route: OINTMENT;OPHTHALMIC
Application: A062167 | Product #001
Applicant: PHARMADERM DIV ALTANA INC
Approved: Approved Prior to Jan 1, 1982 | RLD: No | RS: No | Type: DISCN